FAERS Safety Report 13716677 (Version 1)
Quarter: 2017Q3

REPORT INFORMATION
  Report Type: Spontaneous
  Country: CA (occurrence: CA)
  Receive Date: 20170705
  Receipt Date: 20170705
  Transmission Date: 20171127
  Serious: Yes (Death)
  Sender: FDA-Public Use
  Company Number: CA-ACTELION-A-US2017-156040

PATIENT
  Age: 64 Year
  Sex: Female

DRUGS (6)
  1. TOLOXIN [Concomitant]
     Active Substance: DIGOXIN
  2. TRACLEER [Suspect]
     Active Substance: BOSENTAN
     Indication: PULMONARY ARTERIAL HYPERTENSION
     Dosage: 125 MG, UNK
     Route: 048
     Dates: start: 20161117
  3. RAMIPRIL. [Concomitant]
     Active Substance: RAMIPRIL
  4. DIGOXIN. [Concomitant]
     Active Substance: DIGOXIN
  5. XARELTO [Concomitant]
     Active Substance: RIVAROXABAN
  6. TIAZAC [Concomitant]
     Active Substance: DILTIAZEM HYDROCHLORIDE

REACTIONS (1)
  - Death [Fatal]
